FAERS Safety Report 21244509 (Version 1)
Quarter: 2022Q3

REPORT INFORMATION
  Report Type: Spontaneous
  Country: CZ (occurrence: CZ)
  Receive Date: 20220823
  Receipt Date: 20220823
  Transmission Date: 20221026
  Serious: Yes (Life-Threatening, Other)
  Sender: FDA-Public Use
  Company Number: CZ-NOVARTISPH-NVSC2022CZ187519

PATIENT
  Sex: Female

DRUGS (3)
  1. IMATINIB [Suspect]
     Active Substance: IMATINIB
     Indication: Chronic myeloid leukaemia
     Dosage: 400 MG, QD
     Route: 065
     Dates: start: 20210325
  2. IMATINIB [Suspect]
     Active Substance: IMATINIB
     Dosage: 200 MG
     Route: 065
  3. IMATINIB [Suspect]
     Active Substance: IMATINIB
     Dosage: UNK, QD (100 MG AND  200 MG  ALTERNATING)
     Route: 065

REACTIONS (14)
  - Haematotoxicity [Recovering/Resolving]
  - Chronic myeloid leukaemia recurrent [Recovering/Resolving]
  - Atrial fibrillation [Unknown]
  - Diabetic metabolic decompensation [Unknown]
  - Pulmonary hypertension [Unknown]
  - Cardiac failure [Unknown]
  - Acute kidney injury [Unknown]
  - Hypercalcaemia [Unknown]
  - Hyperphosphataemia [Unknown]
  - Generalised oedema [Unknown]
  - Arteriovenous fistula [Unknown]
  - Monoclonal gammopathy [Unknown]
  - Hepatomegaly [Unknown]
  - Splenomegaly [Unknown]

NARRATIVE: CASE EVENT DATE: 20210301
